FAERS Safety Report 6147387-X (Version None)
Quarter: 2009Q2

REPORT INFORMATION
  Report Type: 
  Country: None (occurrence: None)
  Receive Date: 20090408
  Receipt Date: 20090331
  Transmission Date: 20091009
  Serious: Yes (Hospitalization, Other)
  Sender: FDA-Public Use
  Company Number: US-PFIZER INC-2005086792

PATIENT
  Sex: Female

DRUGS (5)
  1. MEDROXYPROGESTERONE AND MEDROXYPROGESTERONE ACETATE [Suspect]
     Indication: HORMONE REPLACEMENT THERAPY
     Dosage: 5 MG, 1X/DAY
     Route: 048
     Dates: start: 19940101, end: 19960101
  2. PREMARIN [Suspect]
     Indication: HORMONE REPLACEMENT THERAPY
     Dosage: 0.625 MG, 1X/DAY
     Route: 048
     Dates: start: 19940101, end: 19960101
  3. PREMPRO [Suspect]
     Indication: HORMONE REPLACEMENT THERAPY
     Dosage: 0.625/2.5MG
     Route: 048
     Dates: start: 19970101, end: 19990101
  4. PREMPHASE 14/14 [Suspect]
     Indication: HORMONE REPLACEMENT THERAPY
     Dosage: UNK
     Dates: start: 19970101, end: 19990101
  5. ACTONEL [Concomitant]
     Indication: OSTEOPOROSIS
     Dosage: 35 MG, UNK
     Dates: start: 19980101

REACTIONS (2)
  - BREAST CALCIFICATIONS [None]
  - BREAST CANCER [None]
